FAERS Safety Report 14205492 (Version 1)
Quarter: 2017Q4

REPORT INFORMATION
  Report Type: Spontaneous
  Country: US (occurrence: US)
  Receive Date: 20171120
  Receipt Date: 20171120
  Transmission Date: 20180321
  Serious: Yes (Other)
  Sender: FDA-Public Use
  Company Number: US-ALEXION PHARMACEUTICALS INC.-A201712827

PATIENT
  Age: 38 Year
  Sex: Female

DRUGS (2)
  1. ECULIZUMAB [Suspect]
     Active Substance: ECULIZUMAB
     Indication: ATYPICAL HAEMOLYTIC URAEMIC SYNDROME
     Dosage: UNK, TWO TIMES A WEEK
     Route: 065
  2. PENICILLIN VK [Concomitant]
     Active Substance: PENICILLIN V POTASSIUM
     Indication: PROPHYLAXIS
     Dosage: 1000 MG, BID
     Route: 048

REACTIONS (4)
  - Neisseria test positive [Unknown]
  - Chills [Unknown]
  - End stage renal disease [Unknown]
  - Pyrexia [Unknown]

NARRATIVE: CASE EVENT DATE: 201701
